FAERS Safety Report 8491667-X (Version None)
Quarter: 2012Q3

REPORT INFORMATION
  Report Type: 
  Country: None (occurrence: None)
  Receive Date: 20120706
  Receipt Date: 20120626
  Transmission Date: 20120928
  Serious: Yes (Other)
  Sender: FDA-Public Use
  Company Number: BR-BRISTOL-MYERS SQUIBB COMPANY-16727331

PATIENT
  Age: 46 Year
  Sex: Female

DRUGS (6)
  1. METFORMIN HCL [Suspect]
     Indication: DIABETES MELLITUS
     Route: 048
     Dates: start: 20090610
  2. ZETIA [Concomitant]
     Route: 048
     Dates: start: 20040610
  3. CAPILLAREMA [Suspect]
     Route: 048
     Dates: start: 20120610
  4. LOSARTAN POTASSIUM AND HYDROCHLOROTHIAZIDE [Concomitant]
     Dosage: 1 DF: LOSARTAN 100 MG + HCTZ
     Route: 048
     Dates: start: 20080610
  5. SYNTHROID [Concomitant]
     Dosage: 1DF: 75MCG(1 IN 1 D), 50MCG(1 IN 1 D)
     Route: 048
     Dates: start: 20040610
  6. CALCIUM + VITAMIN D [Concomitant]
     Route: 048
     Dates: start: 20040610

REACTIONS (3)
  - BLOOD PRESSURE INCREASED [None]
  - INSOMNIA [None]
  - ANXIETY [None]
